FAERS Safety Report 16827992 (Version 2)
Quarter: 2019Q3

REPORT INFORMATION
  Report Type: Spontaneous
  Country: CN (occurrence: CN)
  Receive Date: 20190919
  Receipt Date: 20190924
  Transmission Date: 20191005
  Serious: Yes (Other)
  Sender: FDA-Public Use
  Company Number: CN-ASTRAZENECA-2019SF31426

PATIENT
  Age: 53 Year
  Sex: Male

DRUGS (1)
  1. IRESSA [Suspect]
     Active Substance: GEFITINIB
     Indication: LUNG NEOPLASM MALIGNANT
     Dosage: 1 TABLET IN EVERY MORNING
     Route: 048
     Dates: start: 201706, end: 2019

REACTIONS (6)
  - Metastases to central nervous system [Unknown]
  - Metastases to liver [Unknown]
  - Drug resistance [Unknown]
  - Nerve compression [Unknown]
  - Diarrhoea [Recovered/Resolved]
  - Metastases to kidney [Unknown]

NARRATIVE: CASE EVENT DATE: 201906
